FAERS Safety Report 6075706-1 (Version None)
Quarter: 2009Q1

REPORT INFORMATION
  Report Type: 
  Country: None (occurrence: None)
  Receive Date: 20090212
  Receipt Date: 20090210
  Transmission Date: 20090719
  Serious: Yes (Life-Threatening)
  Sender: FDA-Public Use
  Company Number: DE-MERCK-0902DEU00118

PATIENT
  Age: 14 Year
  Sex: Male

DRUGS (3)
  1. CANCIDAS [Suspect]
     Indication: FUNGAL SEPSIS
     Route: 042
     Dates: start: 20090127, end: 20090207
  2. CORTICOSTEROIDS (UNSPECIFIED) [Concomitant]
     Indication: PROPHYLAXIS AGAINST GRAFT VERSUS HOST DISEASE
     Route: 065
  3. [THERAPY UNSPECIFIED] [Concomitant]
     Route: 065

REACTIONS (2)
  - GRAFT VERSUS HOST DISEASE [None]
  - HEPATIC FAILURE [None]
